FAERS Safety Report 7902825-4 (Version None)
Quarter: 2011Q4

REPORT INFORMATION
  Report Type: 
  Country: None (occurrence: None)
  Receive Date: 20111109
  Receipt Date: 20111101
  Transmission Date: 20120403
  Serious: No
  Sender: FDA-Public Use
  Company Number: US-BIOGENIDEC-2011BI041737

PATIENT
  Sex: Female

DRUGS (3)
  1. AVONEX [Suspect]
     Route: 030
     Dates: start: 20090708, end: 20110101
  2. AVONEX [Suspect]
     Indication: MULTIPLE SCLEROSIS
     Route: 030
     Dates: start: 20110727
  3. AVONEX [Suspect]
     Route: 030
     Dates: start: 20050411, end: 20061228

REACTIONS (4)
  - PSYCHIATRIC SYMPTOM [None]
  - NAUSEA [None]
  - INJECTION SITE PAIN [None]
  - FATIGUE [None]
